FAERS Safety Report 8511924-8 (Version None)
Quarter: 2012Q3

REPORT INFORMATION
  Report Type: 
  Country: None (occurrence: None)
  Receive Date: 20120716
  Receipt Date: 20120711
  Transmission Date: 20120928
  Serious: Yes (Hospitalization)
  Sender: FDA-Public Use
  Company Number: PHHY2012CN060025

PATIENT
  Sex: Male
  Weight: 50 kg

DRUGS (3)
  1. NEORAL [Suspect]
     Indication: PROPHYLAXIS AGAINST TRANSPLANT REJECTION
  2. MYCOPHENOLIC ACID [Suspect]
     Indication: PROPHYLAXIS AGAINST TRANSPLANT REJECTION
     Dosage: 1500 MG, DAILY
     Route: 048
     Dates: start: 20120104
  3. NEORAL [Suspect]
     Indication: RENAL TRANSPLANT
     Dosage: 200 MG, DAILY
     Route: 048
     Dates: start: 20120104, end: 20120611

REACTIONS (6)
  - DIABETES MELLITUS [None]
  - FATIGUE [None]
  - DRY MOUTH [None]
  - WEIGHT DECREASED [None]
  - LUNG INFECTION [None]
  - INTERSTITIAL LUNG DISEASE [None]
